FAERS Safety Report 5030430-9 (Version None)
Quarter: 2006Q2

REPORT INFORMATION
  Report Type: 
  Country: None (occurrence: None)
  Receive Date: 20060615
  Receipt Date: 20060606
  Transmission Date: 20061013
  Serious: Yes (Other)
  Sender: FDA-Public Use
  Company Number: 2006073285

PATIENT
  Sex: Female
  Weight: 88.4514 kg

DRUGS (7)
  1. ACTIFED COLD + ALLERGY (PSEUDOEPHEDRINE, TRIPROLIDINE) [Suspect]
     Indication: ASTHMA
     Dosage: 1 TABLET TWICE DAILY, ORAL
     Route: 048
     Dates: start: 20040101, end: 20060602
  2. SALBUTAMOL [Concomitant]
  3. SALMETEROL XINAFOATE [Concomitant]
  4. FORMOTEROL FUMARATE [Concomitant]
  5. FLUNISOLIDE [Concomitant]
  6. ACETYLSALICYLIC ACID SRT [Concomitant]
  7. LEVOTHYROXINE SODIUM [Concomitant]

REACTIONS (5)
  - BLOOD PRESSURE SYSTOLIC INCREASED [None]
  - EYE PAIN [None]
  - HEART RATE INCREASED [None]
  - PALPITATIONS [None]
  - PARAESTHESIA [None]
